FAERS Safety Report 10516050 (Version 1)
Quarter: 2014Q4

REPORT INFORMATION
  Report Type: Spontaneous
  Country: US (occurrence: US)
  Receive Date: 20141014
  Receipt Date: 20141014
  Transmission Date: 20150528
  Serious: Yes (Hospitalization, Other)
  Sender: FDA-Public Use
  Company Number: CHPA2014US013779

PATIENT
  Age: 62 Year
  Sex: Female

DRUGS (7)
  1. PREVACID [Suspect]
     Active Substance: LANSOPRAZOLE
     Indication: DYSPEPSIA
     Dosage: 30 MG, QD
     Route: 048
  2. PREVACID [Suspect]
     Active Substance: LANSOPRAZOLE
     Indication: INCORRECT DRUG ADMINISTRATION DURATION
  3. PREVACID [Suspect]
     Active Substance: LANSOPRAZOLE
     Indication: ULCER
  4. APRISO [Concomitant]
     Active Substance: MESALAMINE
     Indication: ULCER
     Dosage: TWICE A DAY
  5. PREVACID [Suspect]
     Active Substance: LANSOPRAZOLE
     Indication: OFF LABEL USE
  6. PREVACID [Suspect]
     Active Substance: LANSOPRAZOLE
     Indication: INCORRECT DOSE ADMINISTERED
  7. NORCO [Concomitant]
     Active Substance: ACETAMINOPHEN\HYDROCODONE BITARTRATE
     Dosage: AS NEEDED

REACTIONS (12)
  - Breast pain [Not Recovered/Not Resolved]
  - Empyema [Recovered/Resolved]
  - Pneumonia [Recovered/Resolved]
  - Bipolar I disorder [Unknown]
  - Asthma [Recovered/Resolved]
  - Therapeutic response unexpected [Unknown]
  - Cyanosis [Recovered/Resolved]
  - Insomnia [Unknown]
  - Anaemia [Recovered/Resolved]
  - Nerve compression [Recovered/Resolved]
  - Pulmonary pain [Recovered/Resolved]
  - Hypertension [Recovered/Resolved]

NARRATIVE: CASE EVENT DATE: 20121108
